FAERS Safety Report 5592372-X (Version None)
Quarter: 2008Q1

REPORT INFORMATION
  Report Type: 
  Country: None (occurrence: None)
  Receive Date: 20080115
  Receipt Date: 20080109
  Transmission Date: 20080703
  Serious: Yes (Other)
  Sender: FDA-Public Use
  Company Number: US-PFIZER INC-2008003274

PATIENT
  Sex: Female

DRUGS (2)
  1. GEODON [Suspect]
  2. CYMBALTA [Concomitant]

REACTIONS (1)
  - GASTRIC BYPASS [None]
